FAERS Safety Report 8502083-6 (Version None)
Quarter: 2012Q3

REPORT INFORMATION
  Report Type: 
  Country: None (occurrence: None)
  Receive Date: 20120711
  Receipt Date: 20120625
  Transmission Date: 20120928
  Serious: Yes (Hospitalization)
  Sender: FDA-Public Use
  Company Number: CA-JNJFOC-20120612529

PATIENT
  Sex: Male
  Weight: 42 kg

DRUGS (3)
  1. REMICADE [Suspect]
     Indication: CROHN'S DISEASE
     Route: 042
     Dates: start: 20101001
  2. DILAUDID [Concomitant]
     Dosage: PRN
     Route: 065
  3. IMURAN [Concomitant]
     Dosage: 2.5 MG DAY
     Route: 065

REACTIONS (1)
  - ABDOMINAL INFECTION [None]
